FAERS Safety Report 16635933 (Version 1)
Quarter: 2019Q3

REPORT INFORMATION
  Report Type: Spontaneous
  Country: FR (occurrence: FR)
  Receive Date: 20190726
  Receipt Date: 20190726
  Transmission Date: 20191004
  Serious: Yes (Congenital Anomaly)
  Sender: FDA-Public Use
  Company Number: FR-PROVELL PHARMACEUTICALS-2071340

PATIENT
  Age: 1 Month
  Sex: Male
  Weight: 3.28 kg

DRUGS (4)
  1. EUTHYROX [Suspect]
     Active Substance: LEVOTHYROXINE SODIUM
     Indication: HYPOTHYROIDISM
     Route: 064
     Dates: end: 20181120
  2. BRINTELLIX [Suspect]
     Active Substance: VORTIOXETINE HYDROBROMIDE
     Route: 064
     Dates: end: 20180406
  3. UVEDOSE [Suspect]
     Active Substance: CHOLECALCIFEROL
     Route: 064
     Dates: end: 20181120
  4. ACIDE FOLIQUE [Suspect]
     Active Substance: FOLIC ACID
     Route: 064
     Dates: end: 20180514

REACTIONS (1)
  - Pyloric stenosis [Recovered/Resolved]

NARRATIVE: CASE EVENT DATE: 20181231
